FAERS Safety Report 8071660-1 (Version None)
Quarter: 2012Q1

REPORT INFORMATION
  Report Type: 
  Country: None (occurrence: None)
  Receive Date: 20120125
  Receipt Date: 20120117
  Transmission Date: 20120608
  Serious: Yes (Hospitalization, Other)
  Sender: FDA-Public Use
  Company Number: FR-PFIZER INC-2012016855

PATIENT
  Age: 81 Year
  Sex: Female

DRUGS (7)
  1. ACTONEL [Concomitant]
     Dosage: UNK
  2. OMEPRAZOLE [Concomitant]
     Dosage: UNK
  3. ARICEPT [Suspect]
     Dosage: 10 MG, DAILY
     Route: 048
     Dates: start: 20110504, end: 20110711
  4. FLAGYL [Suspect]
     Dosage: 1 DF, UNK
     Dates: start: 20110627
  5. AUGMENTIN '125' [Suspect]
     Indication: DIVERTICULUM INTESTINAL
     Dosage: 1 DF, UNK
     Route: 048
     Dates: start: 20110627, end: 20110711
  6. AUGMENTIN '125' [Suspect]
     Dosage: 1 DF, UNK
     Route: 042
     Dates: start: 20110627, end: 20110711
  7. CALCIUM [Concomitant]
     Dosage: UNK

REACTIONS (4)
  - MELAENA [None]
  - GASTRITIS [None]
  - ABDOMINAL PAIN [None]
  - DIARRHOEA [None]
